FAERS Safety Report 17313752 (Version 1)
Quarter: 2020Q1

REPORT INFORMATION
  Report Type: Spontaneous
  Country: US (occurrence: US)
  Receive Date: 20200107
  Receipt Date: 20200107
  Transmission Date: 20200409
  Serious: Yes (Death)
  Sender: FDA-Public Use
  Company Number: None

PATIENT
  Age: 76 Year
  Sex: Female

DRUGS (17)
  1. LETROZOLE. [Concomitant]
     Active Substance: LETROZOLE
  2. DICLOFENAC [Concomitant]
     Active Substance: DICLOFENAC
  3. WARFARIN [Concomitant]
     Active Substance: WARFARIN
  4. CARVEDILOL. [Concomitant]
     Active Substance: CARVEDILOL
  5. BIOTIN [Concomitant]
     Active Substance: BIOTIN
  6. IBRANCE [Suspect]
     Active Substance: PALBOCICLIB
     Indication: BONE CANCER
     Dosage: ?          OTHER FREQUENCY:DAILY  FOR 21 DAYS;?
     Route: 048
     Dates: start: 20190806
  7. DEXILANT [Concomitant]
     Active Substance: DEXLANSOPRAZOLE
  8. ASCORBIC ACID. [Concomitant]
     Active Substance: ASCORBIC ACID
  9. LEVOTHYROXINE. [Concomitant]
     Active Substance: LEVOTHYROXINE
  10. OXYBUTYNIN. [Concomitant]
     Active Substance: OXYBUTYNIN CHLORIDE
  11. RISPERIDONE. [Concomitant]
     Active Substance: RISPERIDONE
  12. LOVASTATIN. [Concomitant]
     Active Substance: LOVASTATIN
  13. PROCHLORPERAZINE. [Concomitant]
     Active Substance: PROCHLORPERAZINE
  14. ALBUTEROL. [Concomitant]
     Active Substance: ALBUTEROL
  15. FOLIC ACID. [Concomitant]
     Active Substance: FOLIC ACID
  16. POTASSSIUM [Concomitant]
  17. SERTRALINE [Concomitant]
     Active Substance: SERTRALINE HYDROCHLORIDE

REACTIONS (1)
  - Death [None]
